FAERS Safety Report 10214835 (Version 2)
Quarter: 2014Q2

REPORT INFORMATION
  Report Type: Spontaneous
  Country: US (occurrence: US)
  Receive Date: 20140603
  Receipt Date: 20140605
  Transmission Date: 20141212
  Serious: Yes (Hospitalization, Other)
  Sender: FDA-Public Use
  Company Number: US-BAXTER-2014BAX027660

PATIENT
  Sex: Male

DRUGS (3)
  1. DIANEAL LOW CALCIUM [Suspect]
     Indication: PERITONEAL DIALYSIS
     Dosage: 3 BAGS OF 6L EACH
     Route: 033
     Dates: start: 2010
  2. DIANEAL LOW CALCIUM (ULTRABAG) [Suspect]
     Indication: PERITONEAL DIALYSIS
     Route: 033
  3. EXTRANEAL [Suspect]
     Indication: PERITONEAL DIALYSIS
     Route: 033
     Dates: start: 2010

REACTIONS (4)
  - Gastric disorder [Recovering/Resolving]
  - Haematemesis [Recovered/Resolved]
  - Oesophageal polyp [Recovered/Resolved]
  - Oropharyngeal pain [Recovered/Resolved]
